FAERS Safety Report 5069241-7 (Version None)
Quarter: 2006Q3

REPORT INFORMATION
  Report Type: 
  Country: None (occurrence: None)
  Receive Date: 20060714
  Receipt Date: 20060402
  Transmission Date: 20061208
  Serious: No
  Sender: FDA-Public Use
  Company Number: 2006SP001492

PATIENT
  Age: 64 Year
  Sex: Female
  Weight: 127.0072 kg

DRUGS (13)
  1. LUNESTA [Suspect]
     Indication: INSOMNIA
     Dosage: SEE IMAGE
     Route: 048
     Dates: start: 20060331, end: 20060403
  2. LUNESTA [Suspect]
     Indication: INSOMNIA
     Dosage: SEE IMAGE
     Route: 048
     Dates: start: 20060301
  3. VITAMINS [Concomitant]
  4. ATORVASTATIN CALCIUM [Concomitant]
  5. METFORMIN [Concomitant]
  6. AVANDIA [Concomitant]
  7. FUROSEMIDE [Concomitant]
  8. CALCIUM GLUCONATE [Concomitant]
  9. PRILOSEC [Concomitant]
  10. IRON [Concomitant]
  11. POTASSIUM [Concomitant]
  12. WARFARIN SODIUM [Concomitant]
  13. REQUIP [Concomitant]

REACTIONS (1)
  - INSOMNIA [None]
